FAERS Safety Report 7712530-5 (Version None)
Quarter: 2011Q3

REPORT INFORMATION
  Report Type: 
  Country: None (occurrence: None)
  Receive Date: 20110823
  Receipt Date: 20110811
  Transmission Date: 20111222
  Serious: Yes (Other)
  Sender: FDA-Public Use
  Company Number: 2011SP033969

PATIENT
  Sex: Female

DRUGS (1)
  1. DESOGESTREL AND ETHINYL ESTRADIOL [Suspect]
     Indication: CONTRACEPTION

REACTIONS (7)
  - MEDICATION ERROR [None]
  - PREGNANCY [None]
  - FURUNCLE [None]
  - DRUG DOSE OMISSION [None]
  - HEPATIC STEATOSIS [None]
  - MATERNAL EXPOSURE BEFORE PREGNANCY [None]
  - WEIGHT INCREASED [None]
